FAERS Safety Report 10191359 (Version 1)
Quarter: 2014Q2

REPORT INFORMATION
  Report Type: Spontaneous
  Country: US (occurrence: None)
  Receive Date: 20140522
  Receipt Date: 20140522
  Transmission Date: 20141212
  Serious: Yes (Hospitalization)
  Sender: FDA-Public Use
  Company Number: None

PATIENT
  Age: 3 Month
  Sex: Female
  Weight: 5.9 kg

DRUGS (1)
  1. BACLOFEN 1 MG/ML [Suspect]
     Indication: GASTROOESOPHAGEAL REFLUX DISEASE
     Route: 048
     Dates: start: 20140519, end: 20140519

REACTIONS (3)
  - Depressed level of consciousness [None]
  - Unresponsive to stimuli [None]
  - Mental status changes [None]
